FAERS Safety Report 19847799 (Version 15)
Quarter: 2025Q2

REPORT INFORMATION
  Report Type: Spontaneous
  Country: US (occurrence: US)
  Receive Date: 20210917
  Receipt Date: 20250620
  Transmission Date: 20250716
  Serious: Yes (Hospitalization, Other)
  Sender: PFIZER
  Company Number: US-PFIZER INC-202101212830

PATIENT
  Age: 72 Year
  Sex: Female
  Weight: 65.76 kg

DRUGS (2)
  1. XELJANZ XR [Suspect]
     Active Substance: TOFACITINIB CITRATE
     Indication: Rheumatoid arthritis
     Dosage: 11 MG, DAILY
     Route: 048
     Dates: start: 2021
  2. XELJANZ XR [Suspect]
     Active Substance: TOFACITINIB CITRATE
     Dosage: 11 MG, 1X/DAY
     Route: 048

REACTIONS (25)
  - COVID-19 pneumonia [Recovered/Resolved]
  - Nerve compression [Unknown]
  - Spinal stenosis [Unknown]
  - Cervical radiculopathy [Unknown]
  - Foot operation [Unknown]
  - Rheumatoid arthritis [Unknown]
  - Foot fracture [Recovering/Resolving]
  - Retinal tear [Unknown]
  - Pain in extremity [Not Recovered/Not Resolved]
  - Hypoaesthesia [Unknown]
  - Paraesthesia [Unknown]
  - Peripheral swelling [Not Recovered/Not Resolved]
  - Joint swelling [Not Recovered/Not Resolved]
  - Arthralgia [Unknown]
  - Dyspnoea [Unknown]
  - Back pain [Not Recovered/Not Resolved]
  - Musculoskeletal stiffness [Unknown]
  - Spinal osteoarthritis [Unknown]
  - Pain [Unknown]
  - Burning sensation [Unknown]
  - Joint effusion [Unknown]
  - Nodule [Unknown]
  - Antinuclear antibody positive [Unknown]
  - Skin wrinkling [Unknown]
  - Blood cholesterol increased [Unknown]

NARRATIVE: CASE EVENT DATE: 20210601
